FAERS Safety Report 4388376-5 (Version None)
Quarter: 2004Q3

REPORT INFORMATION
  Report Type: 
  Country: None (occurrence: None)
  Receive Date: 20040701
  Receipt Date: 20030725
  Transmission Date: 20050211
  Serious: Yes (Hospitalization)
  Sender: FDA-Public Use
  Company Number: SE-BRISTOL-MYERS SQUIBB COMPANY-12335303

PATIENT
  Age: 53 Year
  Sex: Female

DRUGS (5)
  1. KENACORT-T INJ 10 MG/ML [Suspect]
     Indication: MYALGIA
     Dosage: DOSAGE: 2ML X 10MG/ML
     Dates: start: 20030627, end: 20030627
  2. KENACORT-T INJ 10 MG/ML [Suspect]
     Indication: SWELLING
     Dosage: DOSAGE: 2ML X 10MG/ML
     Dates: start: 20030627, end: 20030627
  3. CARBOCAINE [Concomitant]
     Dates: start: 20030627
  4. DISTALGESIC [Concomitant]
  5. IBUPROFEN [Concomitant]

REACTIONS (6)
  - C-REACTIVE PROTEIN INCREASED [None]
  - INJECTION SITE WARMTH [None]
  - MUSCULOSKELETAL STIFFNESS [None]
  - PYREXIA [None]
  - SOFT TISSUE INFECTION [None]
  - SUBCUTANEOUS ABSCESS [None]
